FAERS Safety Report 9540422 (Version 1)
Quarter: 2013Q3

REPORT INFORMATION
  Report Type: Report from Study
  Country: US (occurrence: US)
  Receive Date: 20130920
  Receipt Date: 20130920
  Transmission Date: 20140515
  Serious: Yes (Hospitalization)
  Sender: FDA-Public Use
  Company Number: US-BAYER-2013-113305

PATIENT
  Age: 49 Year
  Sex: Female

DRUGS (1)
  1. REGORAFENIB [Suspect]
     Indication: COLON CANCER
     Dosage: 160 MG DAILY
     Route: 048
     Dates: start: 201308, end: 201309

REACTIONS (3)
  - Vaginal mucosal blistering [None]
  - Blister [None]
  - Blister [None]
